FAERS Safety Report 10261228 (Version 2)
Quarter: 2014Q3

REPORT INFORMATION
  Report Type: Spontaneous
  Country: PH (occurrence: PH)
  Receive Date: 20140626
  Receipt Date: 20140930
  Transmission Date: 20150326
  Serious: Yes (Other)
  Sender: FDA-Public Use
  Company Number: PH-RANBAXY-2014RR-82913

PATIENT
  Age: 41 Year
  Sex: Male

DRUGS (2)
  1. COLCHICINE. [Interacting]
     Active Substance: COLCHICINE
     Indication: GOUT
     Dosage: 2 MG, DAILY, HIGH DOSE
     Route: 065
  2. FENOFIBRATE. [Suspect]
     Active Substance: FENOFIBRATE
     Indication: PRODUCT USED FOR UNKNOWN INDICATION
     Dosage: 160 MG, UNK

REACTIONS (3)
  - Myopathy [Recovering/Resolving]
  - IgA nephropathy [Recovering/Resolving]
  - Drug interaction [Recovering/Resolving]
